FAERS Safety Report 5848867-4 (Version None)
Quarter: 2008Q3

REPORT INFORMATION
  Report Type: 
  Country: None (occurrence: None)
  Receive Date: 20080818
  Receipt Date: 20080806
  Transmission Date: 20090109
  Serious: Yes (Other)
  Sender: FDA-Public Use
  Company Number: US-PFIZER INC-2008065684

PATIENT
  Sex: Male
  Weight: 90.7 kg

DRUGS (3)
  1. LYRICA [Suspect]
     Indication: TINNITUS
  2. ALL OTHER THERAPEUTIC PRODUCTS [Concomitant]
  3. DRUG, UNSPECIFIED [Concomitant]

REACTIONS (3)
  - ABDOMINAL PAIN UPPER [None]
  - PLATELET COUNT DECREASED [None]
  - SPLENOMEGALY [None]
